FAERS Safety Report 15195573 (Version 1)
Quarter: 2018Q3

REPORT INFORMATION
  Report Type: Spontaneous
  Country: US (occurrence: US)
  Receive Date: 20180626
  Receipt Date: 20180626
  Transmission Date: 20181010
  Serious: Yes (Hospitalization)
  Sender: FDA-Public Use
  Company Number: None

PATIENT
  Age: 62 Year
  Sex: Female

DRUGS (1)
  1. IBRANCE [Suspect]
     Active Substance: PALBOCICLIB
     Indication: BREAST CANCER
     Dosage: 75 MG DAILY FOR 21 DAYS OF A 28 DAY CYCLE BY MOUTH
     Route: 048
     Dates: start: 20180531

REACTIONS (2)
  - Pneumonia [None]
  - Wheezing [None]

NARRATIVE: CASE EVENT DATE: 20180611
